FAERS Safety Report 4492506-4 (Version None)
Quarter: 2004Q4

REPORT INFORMATION
  Report Type: 
  Country: None (occurrence: None)
  Receive Date: 20041029
  Receipt Date: 20041013
  Transmission Date: 20050328
  Serious: Yes (Hospitalization)
  Sender: FDA-Public Use
  Company Number: DSA_25193_2004

PATIENT
  Age: 22 Year
  Sex: Female

DRUGS (11)
  1. DILTIAZEM [Suspect]
     Indication: PULMONARY HYPERTENSION
     Dosage: 180 MG Q DAY
  2. DILTIAZEM [Suspect]
     Indication: PULMONARY HYPERTENSION
     Dosage: 60 MG Q DAY
  3. DILTIAZEM [Suspect]
     Indication: PULMONARY HYPERTENSION
     Dosage: 180 MG Q DAY
  4. SILDENAFIL [Suspect]
     Indication: PULMONARY HYPERTENSION
     Dosage: 150 MG Q DAY PO
     Route: 048
  5. SILDENAFIL [Suspect]
     Indication: PULMONARY HYPERTENSION
     Dosage: 50 MG Q DAY PO
     Route: 048
  6. SILDENAFIL [Suspect]
     Indication: PULMONARY HYPERTENSION
     Dosage: 150 MG Q DAY PO
     Route: 048
  7. SILDENAFIL [Suspect]
     Indication: PULMONARY HYPERTENSION
     Dosage: 150 MG Q DAY PO
     Route: 048
  8. L-ARGININE [Suspect]
     Indication: PULMONARY HYPERTENSION
     Dosage: 3 G Q DAY
  9. L-ARGININE [Suspect]
     Indication: PULMONARY HYPERTENSION
     Dosage: 6 G Q DAY
  10. OXYGEN [Concomitant]
  11. NIFEDIPINE [Concomitant]

REACTIONS (17)
  - AZOTAEMIA [None]
  - CAESAREAN SECTION [None]
  - CARDIAC DISORDER [None]
  - CYANOSIS [None]
  - DRUG EXPOSURE DURING PREGNANCY [None]
  - ECLAMPSIA [None]
  - FAILED INDUCTION OF LABOUR [None]
  - OEDEMA PERIPHERAL [None]
  - PLATELET COUNT DECREASED [None]
  - POST PROCEDURAL COMPLICATION [None]
  - PROTEINURIA [None]
  - PULMONARY ARTERIAL PRESSURE ABNORMAL [None]
  - PULMONARY ARTERIAL PRESSURE DECREASED [None]
  - PULMONARY ARTERIAL PRESSURE INCREASED [None]
  - PULMONARY VASCULAR RESISTANCE ABNORMALITY [None]
  - RESPIRATORY RATE INCREASED [None]
  - VASODILATATION [None]
